FAERS Safety Report 5193531-0 (Version None)
Quarter: 2006Q4

REPORT INFORMATION
  Report Type: 
  Country: None (occurrence: None)
  Receive Date: 20061228
  Receipt Date: 20060707
  Transmission Date: 20070319
  Serious: No
  Sender: FDA-Public Use
  Company Number: US-GLAXOSMITHKLINE-A0611613A

PATIENT
  Age: 63 Year
  Sex: Female
  Weight: 63.6 kg

DRUGS (2)
  1. FLUTICASONE PROPIONATE [Suspect]
     Indication: DRUG USE FOR UNKNOWN INDICATION
     Route: 045
     Dates: start: 20060629, end: 20060701
  2. FLONASE [Concomitant]
     Indication: DRUG USE FOR UNKNOWN INDICATION
     Route: 045

REACTIONS (7)
  - DRUG INEFFECTIVE [None]
  - EPISTAXIS [None]
  - FACIAL PAIN [None]
  - HEADACHE [None]
  - HYPERSENSITIVITY [None]
  - NASAL CONGESTION [None]
  - TOOTHACHE [None]
